FAERS Safety Report 8853894 (Version 2)
Quarter: 2013Q2

REPORT INFORMATION
  Report Type: Spontaneous
  Country: US (occurrence: None)
  Receive Date: 20120426
  Receipt Date: 20120703
  Transmission Date: 20140414
  Serious: No
  Sender: FDA-Public Use
  Company Number: PHEH2012US000980

PATIENT
  Age: 36 Year
  Sex: Female

DRUGS (4)
  1. GILENYA [Suspect]
     Indication: RELAPSING-REMITTING MULTIPLE SCLEROSIS
     Route: 048
     Dates: start: 20110413
  2. GABAPENTIN (GABAPENTIN) [Concomitant]
  3. MIRALAX [Concomitant]
  4. MOBIC (MELOXICAM) [Concomitant]

REACTIONS (4)
  - Dysarthria [None]
  - Paresis [None]
  - Pain [None]
  - Blood pressure decreased [None]
